FAERS Safety Report 13193450 (Version 1)
Quarter: 2017Q1

REPORT INFORMATION
  Report Type: Spontaneous
  Country: FR (occurrence: FR)
  Receive Date: 20170207
  Receipt Date: 20170207
  Transmission Date: 20170428
  Serious: Yes (Hospitalization)
  Sender: FDA-Public Use
  Company Number: FR-JNJFOC-20170202484

PATIENT
  Age: 43 Year
  Sex: Female

DRUGS (1)
  1. REMICADE [Suspect]
     Active Substance: INFLIXIMAB
     Indication: RHEUMATOID ARTHRITIS
     Dosage: THIRD INFUSION ON 22-MAY-2015
     Route: 042
     Dates: end: 20150522

REACTIONS (9)
  - Erythema [Recovered/Resolved]
  - Chest pain [Recovered/Resolved]
  - Pyrexia [Unknown]
  - Chills [Unknown]
  - Infusion related reaction [Recovered/Resolved]
  - Hypothermia [Unknown]
  - Vomiting [Unknown]
  - Pallor [Unknown]
  - Dyspnoea [Recovered/Resolved]

NARRATIVE: CASE EVENT DATE: 20150522
